FAERS Safety Report 7747195-X (Version None)
Quarter: 2011Q3

REPORT INFORMATION
  Report Type: 
  Country: None (occurrence: None)
  Receive Date: 20110913
  Receipt Date: 20110908
  Transmission Date: 20111222
  Serious: Yes (Life-Threatening, Hospitalization, Disabling)
  Sender: FDA-Public Use
  Company Number: FR-PFIZER INC-2011210391

PATIENT
  Age: 68 Year
  Sex: Male

DRUGS (13)
  1. LORAZEPAM [Concomitant]
  2. APROVEL [Concomitant]
  3. CERTOLIZUMAB PEGOL [Suspect]
     Dosage: 1 DF, CYCLIC (EVERY 2 WEEKS)
     Route: 058
     Dates: start: 20110501, end: 20110715
  4. ENDOTELON [Concomitant]
  5. CELEBREX [Suspect]
     Dosage: UNK
     Route: 048
     Dates: end: 20110715
  6. SERMION [Concomitant]
  7. PANTOPRAZOLE [Concomitant]
  8. ISOPTIN [Concomitant]
  9. FENOFIBRATE [Concomitant]
  10. ZOLPIDEM [Concomitant]
  11. CORTANCYL [Suspect]
     Dosage: UNK
  12. ACTONEL [Concomitant]
  13. MORPHINE SULFATE [Concomitant]

REACTIONS (3)
  - NECROTISING FASCIITIS [None]
  - SEPTIC SHOCK [None]
  - SKIN ULCER [None]
